FAERS Safety Report 15783284 (Version 1)
Quarter: 2019Q1

REPORT INFORMATION
  Report Type: Spontaneous
  Country: US (occurrence: US)
  Receive Date: 20190102
  Receipt Date: 20190102
  Transmission Date: 20190417
  Serious: No
  Sender: FDA-Public Use
  Company Number: US-VALIDUS PHARMACEUTICALS LLC-US-2018VAL000206

PATIENT

DRUGS (7)
  1. ASPIRIN                            /00002701/ [Concomitant]
     Active Substance: ASPIRIN
     Indication: ARTHRITIS
     Dosage: 2 DF, QD
     Route: 048
  2. CYCLOBENZAPRINE. [Concomitant]
     Active Substance: CYCLOBENZAPRINE
     Indication: PAIN
     Dosage: 10 MG, QD
     Route: 048
  3. NORPRAMINE [Suspect]
     Active Substance: DESIPRAMINE
     Dosage: 50 MG, UNK
     Dates: start: 20180114, end: 20180114
  4. VERAPAMIL [Concomitant]
     Active Substance: VERAPAMIL HYDROCHLORIDE
     Indication: BLOOD PRESSURE MANAGEMENT
     Dosage: 80 MG, QD
     Route: 048
  5. NORPRAMINE [Suspect]
     Active Substance: DESIPRAMINE
     Indication: PAIN
     Dosage: 75 MG, UNK
     Route: 048
  6. NORPRAMINE [Suspect]
     Active Substance: DESIPRAMINE
     Indication: DEPRESSION
     Dosage: 200 MG, QD
     Route: 048
  7. XANAX [Concomitant]
     Active Substance: ALPRAZOLAM
     Indication: PRODUCT USED FOR UNKNOWN INDICATION
     Dosage: 1 MG, QD
     Route: 048

REACTIONS (12)
  - Drug interaction [Unknown]
  - Ill-defined disorder [Unknown]
  - Depressed mood [Unknown]
  - Withdrawal syndrome [Not Recovered/Not Resolved]
  - Atrial flutter [Unknown]
  - Abdominal discomfort [Not Recovered/Not Resolved]
  - Weight increased [Unknown]
  - Underdose [Unknown]
  - Confusional state [Not Recovered/Not Resolved]
  - Mitral valve prolapse [Unknown]
  - Urinary bladder haemorrhage [Unknown]
  - Cervical spinal stenosis [Unknown]

NARRATIVE: CASE EVENT DATE: 2018
